FAERS Safety Report 5815321-5 (Version None)
Quarter: 2008Q3

REPORT INFORMATION
  Report Type: 
  Country: None (occurrence: None)
  Receive Date: 20080718
  Receipt Date: 20080708
  Transmission Date: 20090109
  Serious: Yes (Other)
  Sender: FDA-Public Use
  Company Number: US-PFIZER INC-2007092590

PATIENT
  Sex: Female
  Weight: 46.3 kg

DRUGS (9)
  1. CHANTIX [Suspect]
     Indication: SMOKING CESSATION THERAPY
     Route: 048
     Dates: start: 20070101, end: 20071001
  2. CHANTIX [Interacting]
     Indication: TOBACCO USER
  3. FENTANYL [Interacting]
     Indication: PAIN
     Route: 062
  4. PAROXETINE HCL [Concomitant]
  5. NEURONTIN [Concomitant]
  6. WELLBUTRIN [Concomitant]
  7. LORAZEPAM [Concomitant]
  8. CYCLOBENZAPRINE HCL [Concomitant]
  9. LIPITOR [Concomitant]

REACTIONS (7)
  - CONTUSION [None]
  - DRUG INTERACTION [None]
  - FALL [None]
  - HALLUCINATION [None]
  - HYPOAESTHESIA [None]
  - MEMORY IMPAIRMENT [None]
  - SOMNAMBULISM [None]
